FAERS Safety Report 13044458 (Version 1)
Quarter: 2016Q4

REPORT INFORMATION
  Report Type: Spontaneous
  Country: US (occurrence: US)
  Receive Date: 20161220
  Receipt Date: 20161220
  Transmission Date: 20170207
  Serious: Yes (Other)
  Sender: FDA-Public Use
  Company Number: US-ROCHE-1041999

PATIENT
  Sex: Male

DRUGS (1)
  1. ZELBORAF [Suspect]
     Active Substance: VEMURAFENIB
     Indication: MALIGNANT MELANOMA
     Route: 048
     Dates: start: 20120207

REACTIONS (8)
  - Rash [Unknown]
  - Headache [Unknown]
  - Tendon pain [Unknown]
  - Squamous cell carcinoma of skin [Unknown]
  - Alopecia [Unknown]
  - Pain in extremity [Unknown]
  - Visual impairment [Unknown]
  - Acrochordon [Unknown]
